FAERS Safety Report 20809584 (Version 1)
Quarter: 2022Q2

REPORT INFORMATION
  Report Type: Spontaneous
  Country: US (occurrence: None)
  Receive Date: 20220510
  Receipt Date: 20220510
  Transmission Date: 20220720
  Serious: Yes (Other)
  Sender: FDA-Public Use
  Company Number: None

PATIENT
  Age: 53 Year
  Sex: Female
  Weight: 83.91 kg

DRUGS (3)
  1. GADAVIST [Suspect]
     Active Substance: GADOBUTROL
  2. VITAMIN D3 [Concomitant]
     Active Substance: CHOLECALCIFEROL
  3. MAGNESIUM [Concomitant]

REACTIONS (15)
  - Nausea [None]
  - Dizziness [None]
  - Headache [None]
  - Disorientation [None]
  - Gait disturbance [None]
  - Cardiac flutter [None]
  - Fatigue [None]
  - Tinnitus [None]
  - Feeling abnormal [None]
  - Arthralgia [None]
  - Blood pressure increased [None]
  - Hepatic enzyme increased [None]
  - Alanine aminotransferase increased [None]
  - Tinnitus [None]
  - Contrast media reaction [None]

NARRATIVE: CASE EVENT DATE: 20220503
